FAERS Safety Report 24984964 (Version 1)
Quarter: 2025Q1

REPORT INFORMATION
  Report Type: Spontaneous
  Country: IT (occurrence: IT)
  Receive Date: 20250219
  Receipt Date: 20250219
  Transmission Date: 20250408
  Serious: Yes (Hospitalization)
  Sender: Long Grove Pharmaceuticals
  Company Number: IT-Long Grove-000097

PATIENT
  Age: 67 Year
  Sex: Male

DRUGS (1)
  1. METHADONE [Suspect]
     Active Substance: METHADONE HYDROCHLORIDE
     Indication: Drug dependence

REACTIONS (1)
  - Crystalluria [Unknown]
